FAERS Safety Report 9303882 (Version 2)
Quarter: 2014Q1

REPORT INFORMATION
  Report Type: Spontaneous
  Country: US (occurrence: US)
  Receive Date: 20130522
  Receipt Date: 20140107
  Transmission Date: 20141002
  Serious: Yes (Life-Threatening, Hospitalization, Other)
  Sender: FDA-Public Use
  Company Number: US-GLAXOSMITHKLINE-A1024313A

PATIENT
  Age: 57 Year
  Sex: Male
  Weight: 54.1 kg

DRUGS (4)
  1. BENLYSTA [Suspect]
     Indication: SYSTEMIC LUPUS ERYTHEMATOSUS
     Dosage: 10MGK CYCLIC
     Route: 042
     Dates: start: 201209
  2. PREDNISONE [Concomitant]
  3. IMURAN [Concomitant]
  4. PLAQUENIL [Concomitant]

REACTIONS (6)
  - Coronary artery occlusion [Recovered/Resolved]
  - Chest pain [Recovered/Resolved]
  - Laboratory test abnormal [Recovered/Resolved]
  - Coronary arterial stent insertion [Recovered/Resolved]
  - Angioplasty [Recovered/Resolved]
  - Angina pectoris [Recovered/Resolved]
